FAERS Safety Report 21782865 (Version 1)
Quarter: 2022Q4

REPORT INFORMATION
  Report Type: Spontaneous
  Country: US (occurrence: None)
  Receive Date: 20221225
  Receipt Date: 20221225
  Transmission Date: 20230113
  Serious: No
  Sender: FDA-Public Use
  Company Number: None

PATIENT
  Age: 26 Year
  Sex: Male
  Weight: 72 kg

DRUGS (2)
  1. DEXTROAMPHET SACCHARAT, AMPHET ASPARTATE, DEXTROAMPHET SULFATE AND AMP [Suspect]
     Active Substance: AMPHETAMINE ASPARTATE\AMPHETAMINE SULFATE\DEXTROAMPHETAMINE SACCHARATE\DEXTROAMPHETAMINE SULFATE
     Indication: Attention deficit hyperactivity disorder
     Dosage: OTHER QUANTITY : OTHER QUANTITY : 1 CAPSULE(S);?;?OTHER QUANTITY : 1 CAPSULE(S);?
     Route: 048
     Dates: start: 20221222
  2. ADDERALL [Concomitant]
     Active Substance: AMPHETAMINE ASPARTATE\AMPHETAMINE SULFATE\DEXTROAMPHETAMINE SACCHARATE\DEXTROAMPHETAMINE SULFATE

REACTIONS (12)
  - Product substitution issue [None]
  - Drug ineffective [None]
  - Disturbance in attention [None]
  - Executive dysfunction [None]
  - Memory impairment [None]
  - Lethargy [None]
  - Fatigue [None]
  - Irritability [None]
  - Mood swings [None]
  - Headache [None]
  - Anxiety [None]
  - Product supply issue [None]

NARRATIVE: CASE EVENT DATE: 20221222
